FAERS Safety Report 22534422 (Version 1)
Quarter: 2023Q2

REPORT INFORMATION
  Report Type: Spontaneous
  Country: BR (occurrence: BR)
  Receive Date: 20230608
  Receipt Date: 20230608
  Transmission Date: 20230722
  Serious: Yes (Other)
  Sender: FDA-Public Use
  Company Number: BR-ROCHE-2270896

PATIENT
  Age: 48 Year
  Sex: Female
  Weight: 50 kg

DRUGS (21)
  1. BROMAZEPAM [Suspect]
     Active Substance: BROMAZEPAM
     Indication: Depression
     Dosage: 10 MG, QD (LEXOTAN)
     Route: 065
  2. CLONAZEPAM [Suspect]
     Active Substance: CLONAZEPAM
     Indication: Sleep disorder
     Dosage: 4 MG, QD
     Route: 065
  3. CLONAZEPAM [Suspect]
     Active Substance: CLONAZEPAM
     Indication: Insomnia
  4. OCRELIZUMAB [Suspect]
     Active Substance: OCRELIZUMAB
     Indication: Multiple sclerosis
     Dosage: 300 MG
     Route: 042
     Dates: start: 20190219
  5. OCRELIZUMAB [Suspect]
     Active Substance: OCRELIZUMAB
     Dosage: 300 MG (ADMINISTERED WITH A 15-DAY SPACE BETWEEN THEM)
     Route: 042
     Dates: start: 20190306
  6. CORTISONE [Suspect]
     Active Substance: CORTISONE
     Indication: Product used for unknown indication
     Dosage: UNK
     Route: 065
  7. METICORTEN [Suspect]
     Active Substance: PREDNISONE
     Indication: Hemiplegia
     Dosage: 0.5 DOSAGE FORM, QD
     Route: 065
  8. METICORTEN [Suspect]
     Active Substance: PREDNISONE
     Dosage: 20 MG, Q8H (EVERY 0.33 DAY)
     Route: 065
  9. METICORTEN [Suspect]
     Active Substance: PREDNISONE
     Dosage: 1 DOSAGE FORM, QD
     Route: 065
  10. METICORTEN [Suspect]
     Active Substance: PREDNISONE
     Dosage: 2 DOSAGE FORM, QD
     Route: 065
  11. METICORTEN [Suspect]
     Active Substance: PREDNISONE
     Dosage: 3 DOSAGE FORM, QD
     Route: 065
  12. PRIMIDONE [Concomitant]
     Active Substance: PRIMIDONE
     Indication: Chills
     Dosage: 100 MG, QD
     Route: 065
  13. PRIMIDONE [Concomitant]
     Active Substance: PRIMIDONE
     Indication: Tremor
  14. ACETAMINOPHEN [Concomitant]
     Active Substance: ACETAMINOPHEN
     Indication: Product used for unknown indication
     Dosage: UNK
     Route: 065
  15. LEXAPRO [Concomitant]
     Active Substance: ESCITALOPRAM OXALATE
     Indication: Product used for unknown indication
     Dosage: 20 MG
     Route: 065
  16. CALCIUM PANTOTHENATE\CYANOCOBALAMIN\NIACINAMIDE\PYRIDOXINE HYDROCHLORI [Concomitant]
     Active Substance: CALCIUM PANTOTHENATE\CYANOCOBALAMIN\NIACINAMIDE\PYRIDOXINE HYDROCHLORIDE\RIBOFLAVIN\THIAMINE MONONIT
     Indication: Product used for unknown indication
     Dosage: UNK
     Route: 065
  17. IVERMECTIN [Concomitant]
     Active Substance: IVERMECTIN
     Indication: Product used for unknown indication
     Dosage: UNK UNK, Q2W (EVERY 15 DAY)
     Route: 065
  18. FLUOXETINE [Concomitant]
     Active Substance: FLUOXETINE HYDROCHLORIDE
     Indication: Anxiety
     Dosage: UNK
     Route: 065
  19. ASCORBIC ACID [Concomitant]
     Active Substance: ASCORBIC ACID
     Indication: Product used for unknown indication
     Dosage: UNK
     Route: 065
  20. PREGABALIN [Concomitant]
     Active Substance: PREGABALIN
     Indication: Arthralgia
     Dosage: 35 MG
     Route: 065
  21. PREGABALIN [Concomitant]
     Active Substance: PREGABALIN
     Indication: Rheumatic fever

REACTIONS (24)
  - Uhthoff^s phenomenon [Recovered/Resolved]
  - White blood cell count decreased [Recovered/Resolved]
  - Candida infection [Recovered/Resolved]
  - Alanine aminotransferase increased [Recovered/Resolved]
  - Aspartate aminotransferase increased [Recovered/Resolved]
  - Urinary tract infection [Recovered/Resolved]
  - Neurogenic bladder [Recovered/Resolved]
  - Hemiplegia [Unknown]
  - Hemiplegia [Recovered/Resolved]
  - Multiple sclerosis pseudo relapse [Recovered/Resolved]
  - Muscle spasms [Recovered/Resolved]
  - Fatigue [Recovering/Resolving]
  - Influenza [Recovered/Resolved]
  - Headache [Recovering/Resolving]
  - Reflexes abnormal [Unknown]
  - Hypoaesthesia [Unknown]
  - Discomfort [Unknown]
  - Paraesthesia [Unknown]
  - Musculoskeletal stiffness [Unknown]
  - Balance disorder [Unknown]
  - Sensory loss [Recovered/Resolved]
  - Sensory loss [Unknown]
  - Intentional product use issue [Unknown]
  - Product use in unapproved indication [Not Recovered/Not Resolved]

NARRATIVE: CASE EVENT DATE: 20190219
